FAERS Safety Report 18353994 (Version 3)
Quarter: 2021Q2

REPORT INFORMATION
  Report Type: Spontaneous
  Country: JP (occurrence: JP)
  Receive Date: 20201007
  Receipt Date: 20210624
  Transmission Date: 20210717
  Serious: Yes (Other)
  Sender: FDA-Public Use
  Company Number: NVSJ2020JP009734

PATIENT
  Age: 45 Year
  Sex: Male
  Weight: 48.5 kg

DRUGS (1)
  1. IMUSERA [Suspect]
     Active Substance: FINGOLIMOD HYDROCHLORIDE
     Indication: SECONDARY PROGRESSIVE MULTIPLE SCLEROSIS
     Dosage: UNK
     Route: 065

REACTIONS (10)
  - Cerebral atrophy [Unknown]
  - Muscle spasms [Unknown]
  - Disturbance in attention [Unknown]
  - Gait disturbance [Unknown]
  - Secondary progressive multiple sclerosis [Unknown]
  - Dyslalia [Unknown]
  - Cognitive disorder [Unknown]
  - Disease progression [Unknown]
  - Memory impairment [Unknown]
  - Product use in unapproved indication [Unknown]
